FAERS Safety Report 24768816 (Version 1)
Quarter: 2024Q4

REPORT INFORMATION
  Report Type: Spontaneous
  Country: US (occurrence: US)
  Receive Date: 20241224
  Receipt Date: 20241224
  Transmission Date: 20250115
  Serious: Yes (Other)
  Sender: ABBVIE
  Company Number: US-ABBVIE-6053722

PATIENT
  Age: 66 Year
  Sex: Male
  Weight: 72.574 kg

DRUGS (6)
  1. HUMIRA [Suspect]
     Active Substance: ADALIMUMAB
     Indication: Crohn^s disease
     Dosage: FORM STRENGTH: 40 MILLIGRAM
     Route: 058
     Dates: start: 201312
  2. VITAMIN D [Concomitant]
     Active Substance: VITAMIN D NOS
     Indication: Vitamin supplementation
  3. SYNTHROID [Concomitant]
     Active Substance: LEVOTHYROXINE SODIUM
     Indication: Hypothyroidism
  4. OMEPRAZOLE [Concomitant]
     Active Substance: OMEPRAZOLE
     Indication: Gastrooesophageal reflux prophylaxis
  5. CALCIUM [Concomitant]
     Active Substance: CALCIUM
     Indication: Mineral supplementation
  6. FOLIC ACID [Concomitant]
     Active Substance: FOLIC ACID
     Indication: Vitamin supplementation

REACTIONS (4)
  - Choking [Recovered/Resolved]
  - Hiatus hernia [Unknown]
  - Acquired oesophageal web [Unknown]
  - Oesophageal motility disorder [Not Recovered/Not Resolved]

NARRATIVE: CASE EVENT DATE: 20210101
